FAERS Safety Report 4899058-5 (Version None)
Quarter: 2006Q1

REPORT INFORMATION
  Report Type: 
  Country: None (occurrence: None)
  Receive Date: 20060130
  Receipt Date: 20060118
  Transmission Date: 20060701
  Serious: Yes (Other)
  Sender: FDA-Public Use
  Company Number: GBWYE238415DEC05

PATIENT
  Sex: Male

DRUGS (3)
  1. EFFEXOR [Suspect]
     Dosage: SEE IMAGE, TRANSPLACENTAL
     Route: 064
     Dates: end: 20050601
  2. EFFEXOR [Suspect]
     Dosage: SEE IMAGE, TRANSPLACENTAL
     Route: 064
     Dates: start: 20000101
  3. EFFEXOR [Suspect]
     Dosage: SEE IMAGE, TRANSPLACENTAL
     Route: 064
     Dates: start: 20050601

REACTIONS (2)
  - DEXTROCARDIA [None]
  - DRUG EXPOSURE DURING PREGNANCY [None]
